FAERS Safety Report 9226173 (Version 1)
Quarter: 2013Q2

REPORT INFORMATION
  Report Type: Spontaneous
  Country: DE (occurrence: DE)
  Receive Date: 20130411
  Receipt Date: 20130411
  Transmission Date: 20140414
  Serious: Yes (Life-Threatening)
  Sender: FDA-Public Use
  Company Number: PHHY2013DE034098

PATIENT
  Age: 44 Year
  Sex: Female
  Weight: 50 kg

DRUGS (6)
  1. GILENYA [Suspect]
     Indication: MULTIPLE SCLEROSIS
     Dosage: 0.5 MG, QD
     Route: 048
     Dates: start: 20110831
  2. TRAMAL [Concomitant]
     Dosage: 2 DF, UNK
     Route: 048
  3. DANTAMACRIN [Concomitant]
     Indication: PARESIS
     Dosage: 4 DF, UNK
  4. LIORESAL [Concomitant]
     Indication: PARESIS
     Route: 048
  5. SATIVEX [Concomitant]
  6. TYSABRI [Concomitant]
     Dates: start: 200803, end: 20110430

REACTIONS (2)
  - Acute myocardial infarction [Unknown]
  - Troponin T increased [Unknown]
